FAERS Safety Report 7903701-3 (Version None)
Quarter: 2011Q4

REPORT INFORMATION
  Report Type: 
  Country: None (occurrence: None)
  Receive Date: 20111109
  Receipt Date: 20111102
  Transmission Date: 20120403
  Serious: Yes (Other)
  Sender: FDA-Public Use
  Company Number: US-SANOFI-AVENTIS-2011SA072123

PATIENT
  Age: 79 Year
  Sex: Male

DRUGS (8)
  1. ELOXATIN [Suspect]
     Route: 041
  2. ELOXATIN [Suspect]
     Route: 041
  3. ELOXATIN [Suspect]
     Route: 041
  4. ELOXATIN [Suspect]
     Route: 041
  5. ELOXATIN [Suspect]
     Route: 041
  6. ELOXATIN [Suspect]
     Route: 041
  7. ELOXATIN [Suspect]
     Indication: COLON CANCER
     Route: 041
  8. ELOXATIN [Suspect]
     Route: 041

REACTIONS (4)
  - CHEST PAIN [None]
  - HYPERHIDROSIS [None]
  - DYSPNOEA [None]
  - VITAL FUNCTIONS ABNORMAL [None]
